FAERS Safety Report 20216279 (Version 4)
Quarter: 2022Q1

REPORT INFORMATION
  Report Type: Report from Study
  Country: BR (occurrence: BR)
  Receive Date: 20211222
  Receipt Date: 20220223
  Transmission Date: 20220423
  Serious: Yes (Other)
  Sender: FDA-Public Use
  Company Number: BR-BIOGEN-2019BI00688653

PATIENT
  Age: 48 Year
  Sex: Female
  Weight: 52 kg

DRUGS (7)
  1. TYSABRI [Suspect]
     Active Substance: NATALIZUMAB
     Indication: Multiple sclerosis
     Route: 050
     Dates: start: 2016
  2. TYSABRI [Suspect]
     Active Substance: NATALIZUMAB
     Route: 050
     Dates: start: 20190527
  3. TYSABRI [Suspect]
     Active Substance: NATALIZUMAB
     Route: 050
     Dates: start: 20140218, end: 20180406
  4. Donaren (Trazodone hydrochloride) [Concomitant]
     Indication: Depression
     Route: 065
     Dates: start: 2021
  5. Donaren (Trazodone hydrochloride) [Concomitant]
     Route: 065
  6. Donaren (Trazodone hydrochloride) [Concomitant]
     Route: 065
     Dates: start: 2020
  7. Donaren (Trazodone hydrochloride) [Concomitant]
     Route: 065
     Dates: start: 2019

REACTIONS (7)
  - Monoparesis [Not Recovered/Not Resolved]
  - Multiple sclerosis relapse [Not Recovered/Not Resolved]
  - Iron deficiency anaemia [Not Recovered/Not Resolved]
  - Paraesthesia [Recovered/Resolved]
  - Back pain [Not Recovered/Not Resolved]
  - Dizziness [Not Recovered/Not Resolved]
  - Headache [Not Recovered/Not Resolved]

NARRATIVE: CASE EVENT DATE: 20181201
